FAERS Safety Report 22598845 (Version 2)
Quarter: 2023Q2

REPORT INFORMATION
  Report Type: Report from Study
  Country: NL (occurrence: NL)
  Receive Date: 20230614
  Receipt Date: 20230626
  Transmission Date: 20230721
  Serious: Yes (Life-Threatening, Hospitalization, Other)
  Sender: FDA-Public Use
  Company Number: NL-002147023-NVSC2023NL132258

PATIENT
  Sex: Female

DRUGS (2)
  1. LEQVIO [Suspect]
     Active Substance: INCLISIRAN SODIUM
     Indication: Cardiovascular disorder
     Dosage: 1 DOSAGE FORM, PER 6 MONTH, STRENGTH (189 MG/ML) (DISPOSABLE SYRINGE)
     Route: 058
     Dates: start: 20230308
  2. LEQVIO [Suspect]
     Active Substance: INCLISIRAN SODIUM
     Indication: Drug intolerance
     Dosage: UNK
     Route: 065
     Dates: start: 20230607

REACTIONS (7)
  - Cardiac failure [Recovering/Resolving]
  - Atrial fibrillation [Not Recovered/Not Resolved]
  - Pneumonia aspiration [Unknown]
  - Cystitis [Recovering/Resolving]
  - Respiratory tract infection [Unknown]
  - Off label use [Unknown]
  - Wrong product administered [Unknown]

NARRATIVE: CASE EVENT DATE: 20230601
